FAERS Safety Report 8779585 (Version 1)
Quarter: 2012Q4

REPORT INFORMATION
  Report Type: 
  Country: US (occurrence: US)
  Receive Date: 20120912
  Receipt Date: 20120912
  Transmission Date: 20130627
  Serious: Yes (Other)
  Sender: FDA-Public Use
  Company Number: US-PAR PHARMACEUTICAL, INC-2012SCPR004611

PATIENT

DRUGS (3)
  1. VERAPAMIL [Suspect]
     Indication: HYPERTENSION
     Dosage: 360 mg, qd
     Route: 065
  2. KETOCONAZOLE [Suspect]
     Indication: ECTOPIC ACTH SYNDROME
     Dosage: 300 mg, tid
     Route: 048
  3. KETOCONAZOLE [Suspect]
     Dosage: 300 mg, Every 6 hours
     Route: 048

REACTIONS (3)
  - Drug interaction [Unknown]
  - Atrioventricular block complete [Recovered/Resolved]
  - Nodal rhythm [Recovered/Resolved]
